FAERS Safety Report 16361887 (Version 6)
Quarter: 2020Q3

REPORT INFORMATION
  Report Type: Spontaneous
  Country: US (occurrence: US)
  Receive Date: 20190528
  Receipt Date: 20200825
  Transmission Date: 20201102
  Serious: Yes (Other)
  Sender: FDA-Public Use
  Company Number: US-PFIZER INC-2019225159

PATIENT
  Age: 31 Year
  Sex: Female

DRUGS (36)
  1. DILANTIN [Suspect]
     Active Substance: PHENYTOIN
     Dosage: 100 MG, 3X/DAY
     Route: 048
     Dates: start: 20190330
  2. PERCOCET [Concomitant]
     Active Substance: ACETAMINOPHEN\OXYCODONE HYDROCHLORIDE
     Indication: PAIN
     Dosage: UNK
  3. TOPAMAX [Concomitant]
     Active Substance: TOPIRAMATE
     Dosage: 100 MG, 2X/DAY
  4. LORTAB [Concomitant]
     Active Substance: ACETAMINOPHEN\HYDROCODONE BITARTRATE
     Indication: PAIN
     Dosage: UNK, 4X/DAY (1?2 TABLETS EVERY 6 HRS)
     Dates: start: 20110723
  5. ZOLOFT [Concomitant]
     Active Substance: SERTRALINE HYDROCHLORIDE
     Dosage: 25 MG, UNK
     Dates: start: 20190211
  6. VITAMIN B6 [Concomitant]
     Active Substance: PYRIDOXINE HYDROCHLORIDE
     Dosage: UNK
  7. DILANTIN [Suspect]
     Active Substance: PHENYTOIN
     Indication: SEIZURE
     Dosage: UNK
     Route: 048
     Dates: start: 2000
  8. DILANTIN [Suspect]
     Active Substance: PHENYTOIN
     Dosage: 100 MG, UNK
     Route: 048
     Dates: start: 20110507, end: 20110507
  9. LAMICTAL [Suspect]
     Active Substance: LAMOTRIGINE
     Indication: SEIZURE
     Dosage: UNK
     Dates: start: 200407
  10. LAMICTAL [Suspect]
     Active Substance: LAMOTRIGINE
     Dosage: 3 DF, 1X/DAY (THREE TABLETS EVERY NIGHT AT BED TIME)
     Route: 048
     Dates: start: 20190109
  11. DEPO?PROVERA [Concomitant]
     Active Substance: MEDROXYPROGESTERONE ACETATE
     Dosage: UNK
     Dates: end: 20000910
  12. PAMELOR [Concomitant]
     Active Substance: NORTRIPTYLINE HYDROCHLORIDE
     Dosage: 3 DF, UNK (THREE CAPSULES BY MOUTH NIGHTLY AT BEDTIME)
     Route: 048
  13. FLONASE [Concomitant]
     Active Substance: FLUTICASONE PROPIONATE
     Dosage: UNK
     Dates: start: 20080922, end: 20130805
  14. DILANTIN [Suspect]
     Active Substance: PHENYTOIN
     Dosage: 100 MG, UNK
     Route: 048
     Dates: start: 20071031
  15. DILANTIN [Suspect]
     Active Substance: PHENYTOIN
     Dosage: 300 MG, 1X/DAY
     Route: 048
     Dates: end: 20160301
  16. DILANTIN [Suspect]
     Active Substance: PHENYTOIN
     Dosage: 200 MG, 2X/DAY
  17. LAMICTAL [Suspect]
     Active Substance: LAMOTRIGINE
     Dosage: 300 MG, DAILY
     Route: 048
     Dates: end: 20160301
  18. DICLOFENAC [Concomitant]
     Active Substance: DICLOFENAC
     Dosage: UNK
     Route: 048
  19. PHENOBARBITAL. [Concomitant]
     Active Substance: PHENOBARBITAL
     Dosage: 3 DF, 1X/DAY (03 TABLETS AT BEDTIME)
  20. DEPO?PROVERA [Concomitant]
     Active Substance: MEDROXYPROGESTERONE ACETATE
     Dosage: UNK
     Dates: start: 20001210
  21. DILANTIN [Suspect]
     Active Substance: PHENYTOIN
     Dosage: 300 MG, DAILY
     Route: 048
     Dates: start: 20071204
  22. DILANTIN [Suspect]
     Active Substance: PHENYTOIN
     Dosage: UNK
     Dates: start: 20050831, end: 20111228
  23. DILANTIN [Suspect]
     Active Substance: PHENYTOIN
     Indication: SEIZURE
     Dosage: UNK
     Dates: start: 200407
  24. DILANTIN [Suspect]
     Active Substance: PHENYTOIN
     Dosage: 3 DF, 1X/DAY (EVERY NIGHT)
     Route: 048
     Dates: start: 20190729
  25. ZOLOFT [Concomitant]
     Active Substance: SERTRALINE HYDROCHLORIDE
     Dosage: 100 MG, 1X/DAY (EVERY AM)
  26. LAMICTAL [Suspect]
     Active Substance: LAMOTRIGINE
     Dosage: 300 MG, DAILY
     Route: 048
     Dates: start: 20130202
  27. LAMICTAL [Suspect]
     Active Substance: LAMOTRIGINE
     Dosage: 7 DF, DAILY (SEVEN 100 MG TABLETS DAILY (3 IN AM AND 3 IN PM))
  28. METAXALONE. [Concomitant]
     Active Substance: METAXALONE
     Dosage: 850 MG, 1X/DAY
     Route: 048
  29. ZYRTEC [Concomitant]
     Active Substance: CETIRIZINE HYDROCHLORIDE
     Dosage: 10 MG, UNK
     Dates: start: 20110426, end: 20130805
  30. TOPAMAX [Concomitant]
     Active Substance: TOPIRAMATE
     Dosage: 25 MG, DAILY
     Route: 048
     Dates: start: 20190424
  31. COLACE [Concomitant]
     Active Substance: DOCUSATE SODIUM
     Dosage: 100 MG, 2X/DAY
     Route: 048
     Dates: start: 20110723
  32. LAMICTAL [Suspect]
     Active Substance: LAMOTRIGINE
     Dosage: 400 MG, 1X/DAY (EVERY MORNING)
     Route: 048
     Dates: end: 20071203
  33. KEPPRA [Suspect]
     Active Substance: LEVETIRACETAM
     Indication: SEIZURE
     Dosage: UNK
  34. DECADRAN INJ [Concomitant]
     Dosage: 40 MG, 3X/DAY (EVERY 8 HRS)
     Route: 042
     Dates: start: 20110723
  35. MOTRIN [Concomitant]
     Active Substance: IBUPROFEN
     Indication: PAIN
     Dosage: 600 MG, 4X/DAY (EVERY 6 HRS)
     Route: 048
     Dates: start: 20110723
  36. PHENOBARBITAL. [Concomitant]
     Active Substance: PHENOBARBITAL
     Dosage: 3X/DAY (ONE THIRD TABLET THRICE DAILY)

REACTIONS (5)
  - Contusion [Unknown]
  - Gliomatosis cerebri [Unknown]
  - Cerebellar atrophy [Not Recovered/Not Resolved]
  - Fall [Unknown]
  - Injury [Unknown]

NARRATIVE: CASE EVENT DATE: 20120612
